FAERS Safety Report 23079562 (Version 1)
Quarter: 2023Q4

REPORT INFORMATION
  Report Type: Spontaneous
  Country: US (occurrence: None)
  Receive Date: 20231017
  Receipt Date: 20231017
  Transmission Date: 20240109
  Serious: Yes (Hospitalization)
  Sender: FDA-Public Use
  Company Number: None

PATIENT
  Age: 64 Year
  Sex: Female

DRUGS (1)
  1. INLYTA [Suspect]
     Active Substance: AXITINIB
     Dosage: OTHER FREQUENCY : Q12 HOURS;?
     Route: 048

REACTIONS (4)
  - Blood pressure increased [None]
  - Thyroid hormones increased [None]
  - Glossodynia [None]
  - Pulmonary oedema [None]

NARRATIVE: CASE EVENT DATE: 20231008
